FAERS Safety Report 25547210 (Version 3)
Quarter: 2025Q3

REPORT INFORMATION
  Report Type: Spontaneous
  Country: EU (occurrence: EU)
  Receive Date: 20250714
  Receipt Date: 20250807
  Transmission Date: 20251020
  Serious: Yes (Hospitalization, Other)
  Sender: AUROBINDO
  Company Number: EU-AUROBINDO-AUR-APL-2025-035604

PATIENT
  Age: 50 Year
  Sex: Male

DRUGS (3)
  1. IBUPROFEN [Suspect]
     Active Substance: IBUPROFEN
     Indication: Product used for unknown indication
     Route: 065
  2. BUTYLSCOPOLAMINE [Suspect]
     Active Substance: BUTYLSCOPOLAMINE
     Indication: Product used for unknown indication
     Route: 065
  3. METAMIZOL [Suspect]
     Active Substance: METAMIZOLE SODIUM
     Indication: Product used for unknown indication
     Route: 065

REACTIONS (2)
  - Tubulointerstitial nephritis [Not Recovered/Not Resolved]
  - Self-medication [Unknown]
